FAERS Safety Report 6076247-8 (Version None)
Quarter: 2009Q1

REPORT INFORMATION
  Report Type: 
  Country: None (occurrence: None)
  Receive Date: 20090212
  Receipt Date: 20090204
  Transmission Date: 20090719
  Serious: Yes (Other)
  Sender: FDA-Public Use
  Company Number: DE-JNJCH-2009001365

PATIENT
  Sex: Female

DRUGS (1)
  1. RHINOPRONT KOMBI [Suspect]
     Indication: DRUG USE FOR UNKNOWN INDICATION
     Dosage: TEXT:UNSPECIFED
     Route: 065

REACTIONS (1)
  - DRUG ABUSE [None]
